FAERS Safety Report 4910852-4 (Version None)
Quarter: 2006Q1

REPORT INFORMATION
  Report Type: 
  Country: None (occurrence: None)
  Receive Date: 20060214
  Receipt Date: 20060208
  Transmission Date: 20060701
  Serious: Yes (Hospitalization)
  Sender: FDA-Public Use
  Company Number: UG-GLAXOSMITHKLINE-B0409420A

PATIENT
  Age: 32 Year
  Sex: Female

DRUGS (2)
  1. TRIZIVIR [Suspect]
     Indication: HIV INFECTION
     Route: 048
     Dates: start: 20041108
  2. ANTI-TUBERCULOSIS MEDICATION [Concomitant]
     Dates: start: 20041011

REACTIONS (5)
  - DIPLOPIA [None]
  - HEADACHE [None]
  - PAPILLOEDEMA [None]
  - RASH [None]
  - VITH NERVE PARALYSIS [None]
